FAERS Safety Report 18600104 (Version 3)
Quarter: 2021Q3

REPORT INFORMATION
  Report Type: Spontaneous
  Country: PT (occurrence: PT)
  Receive Date: 20201210
  Receipt Date: 20210812
  Transmission Date: 20211014
  Serious: Yes (Other)
  Sender: FDA-Public Use
  Company Number: PT-ASTRAZENECA-2020SF61368

PATIENT
  Age: 55 Year
  Sex: Female

DRUGS (7)
  1. LESCOL XL [Suspect]
     Active Substance: FLUVASTATIN SODIUM
     Indication: PRODUCT USED FOR UNKNOWN INDICATION
     Dosage: 80.0MG UNKNOWN
     Route: 065
     Dates: start: 2000
  2. LESCOL XL [Suspect]
     Active Substance: FLUVASTATIN SODIUM
     Indication: PRODUCT USED FOR UNKNOWN INDICATION
     Dosage: 80.0MG UNKNOWN
     Route: 065
  3. ALIPZA [Suspect]
     Active Substance: PITAVASTATIN
     Indication: PRODUCT USED FOR UNKNOWN INDICATION
     Dosage: UNK
     Route: 065
  4. CRESTOR [Suspect]
     Active Substance: ROSUVASTATIN CALCIUM
     Indication: PRODUCT USED FOR UNKNOWN INDICATION
     Dosage: UNK
     Route: 048
  5. VALERIAN [Concomitant]
     Active Substance: VALERIAN
     Indication: ANXIOLYTIC THERAPY
     Dosage: UNK
  6. FLAGYL [Concomitant]
     Active Substance: METRONIDAZOLE\METRONIDAZOLE HYDROCHLORIDE
     Indication: PRODUCT USED FOR UNKNOWN INDICATION
     Dosage: UNK
     Route: 065
     Dates: start: 2007
  7. BROMALEX [Suspect]
     Active Substance: BROMAZEPAM
     Indication: PRODUCT USED FOR UNKNOWN INDICATION
     Route: 065
     Dates: start: 20200828, end: 20200906

REACTIONS (34)
  - Dyspnoea [Unknown]
  - Diarrhoea [Unknown]
  - Throat irritation [Unknown]
  - Eczema [Unknown]
  - Faecaloma [Not Recovered/Not Resolved]
  - Neuropathy peripheral [Unknown]
  - Depression [Not Recovered/Not Resolved]
  - Fear [Unknown]
  - Paraesthesia [Unknown]
  - Hyperhidrosis [Unknown]
  - Aptyalism [Unknown]
  - Eye pruritus [Unknown]
  - Abdominal pain upper [Unknown]
  - Dry eye [Unknown]
  - Tinnitus [Unknown]
  - Gait disturbance [Unknown]
  - Anorgasmia [Not Recovered/Not Resolved]
  - Genital paraesthesia [Unknown]
  - Pollakiuria [Unknown]
  - Skeletal injury [Unknown]
  - Abdominal pain [Unknown]
  - Polyneuropathy [Unknown]
  - Anorectal discomfort [Unknown]
  - Functional gastrointestinal disorder [Unknown]
  - Dizziness [Unknown]
  - Constipation [Not Recovered/Not Resolved]
  - Rhinitis [Unknown]
  - Urinary retention [Not Recovered/Not Resolved]
  - Lacrimal disorder [Unknown]
  - Muscle atrophy [Not Recovered/Not Resolved]
  - Disturbance in sexual arousal [Not Recovered/Not Resolved]
  - Fall [Unknown]
  - Sexual dysfunction [Not Recovered/Not Resolved]
  - Hypoaesthesia [Unknown]
